FAERS Safety Report 18540338 (Version 1)
Quarter: 2020Q4

REPORT INFORMATION
  Report Type: Report from Study
  Country: DE (occurrence: DE)
  Receive Date: 20201124
  Receipt Date: 20201124
  Transmission Date: 20210114
  Serious: Yes (Death)
  Sender: FDA-Public Use
  Company Number: DE-MYLANLABS-2020M1096140

PATIENT
  Age: 49 Year
  Sex: Male

DRUGS (4)
  1. MIDAZOLAM. [Concomitant]
     Active Substance: MIDAZOLAM
     Indication: SEDATIVE THERAPY
     Dosage: 5.2 MG/H, UNK
     Dates: start: 20140205
  2. SUFENTANIL [Concomitant]
     Active Substance: SUFENTANIL
     Indication: SEDATIVE THERAPY
     Dosage: 4 MG/H, UNK
     Dates: start: 20140205
  3. ESKETAMINE [Concomitant]
     Active Substance: ESKETAMINE
     Indication: SEDATIVE THERAPY
     Dosage: 2 MG/H, UNK
     Dates: start: 20140205
  4. TOBI [Suspect]
     Active Substance: TOBRAMYCIN
     Indication: PNEUMONIA
     Dosage: UNK
     Route: 055
     Dates: start: 20140315, end: 20140317

REACTIONS (1)
  - Septic shock [Fatal]

NARRATIVE: CASE EVENT DATE: 20140317
